FAERS Safety Report 17930911 (Version 2)
Quarter: 2020Q3

REPORT INFORMATION
  Report Type: Spontaneous
  Country: HU (occurrence: HU)
  Receive Date: 20200623
  Receipt Date: 20200716
  Transmission Date: 20201103
  Serious: Yes (Life-Threatening, Other)
  Sender: FDA-Public Use
  Company Number: HU-PFIZER INC-2020239332

PATIENT
  Age: 49 Year
  Sex: Female

DRUGS (16)
  1. LIOTON [Concomitant]
     Dosage: APPLIED ON THE SKIN OF THE ABDOMEN, TWICE A DAY
  2. CITROKALCIUM [Concomitant]
     Dosage: 200 MG 8 HOURS
  3. COVERCARD [Concomitant]
     Active Substance: AMLODIPINE BESYLATE\PERINDOPRIL ARGININE
     Dosage: 0.5 DF 24 HOURS 1 DF = 10 MG PERINDOPRIL + 5 MG AMLODIPINEHALF OF A TABLET IN THE EVENING
  4. COVEREX AS KOMB FORTE [Concomitant]
     Dosage: 0.5 MG 24 HOURS 1 DF = 10 MG PERINDOPRIL + 2.5 MG INDAPAMIDEHALF OF A TABLET IN THE MORNING
  5. ASPIRIN. [Concomitant]
     Active Substance: ASPIRIN
     Dosage: 100 MG ONE TABLET AT LUNCHTIME DURING A MEAL
  6. SUPRASTIN [Concomitant]
     Active Substance: CHLOROPYRAMINE HYDROCHLORIDE
     Dosage: 25 MG 8 HOURS
  7. VITAMIN D3 [Concomitant]
     Active Substance: CHOLECALCIFEROL
     Dosage: 3000 IU 24 HOURS, ONE CAPSULE IN THE MORNING
  8. CLEXANE [Concomitant]
     Active Substance: ENOXAPARIN SODIUM
     Dosage: 80 MG 12 HOURS
  9. XELJANZ [Suspect]
     Active Substance: TOFACITINIB CITRATE
     Indication: TAKAYASU^S ARTERITIS
     Dosage: 5 MG, DAILY (24 HOURS)
     Dates: start: 20200421, end: 20200423
  10. MEMORIL [PIRACETAM] [Concomitant]
     Dosage: 800 MG 24 HOURS ONE TABLET IN THE MORNING
  11. PANTOPRAZOL SANDOZ [Concomitant]
     Active Substance: PANTOPRAZOLE SODIUM
     Dosage: 40 MG 12 HOURS ONE TABLET ONE HOUR BEFORE A MEAL
  12. ARAVA [Concomitant]
     Active Substance: LEFLUNOMIDE
     Dosage: 20 MG 24 HOURS ONE TABLET IN THE MORNING
     Dates: start: 20200318
  13. EUTHYROX [Concomitant]
     Active Substance: LEVOTHYROXINE SODIUM
     Dosage: 100 UG 24 HOURS ONE TABLET IN THE MORNING
  14. CLOPIDOGREL TEVA [CLOPIDOGREL BISULFATE] [Concomitant]
     Dosage: 75 MG 24 HOURS
     Dates: start: 20200421, end: 20200423
  15. AZARGA [Concomitant]
     Active Substance: BRINZOLAMIDE\TIMOLOL MALEATE
     Dosage: 1 DF 12 HOURS 1 DF = 10 MG BRINZOLAMIDE + 5 MG TIMOLOLONE DROP IN BOTH EYES, TWICE A DAY
  16. METFORMIN [Concomitant]
     Active Substance: METFORMIN HYDROCHLORIDE
     Dosage: 250 MG 12 HOURS

REACTIONS (6)
  - Hypersensitivity [Recovered/Resolved]
  - Angioedema [Recovered/Resolved]
  - Urticaria [Recovered/Resolved]
  - Swollen tongue [Recovered/Resolved]
  - Product use in unapproved indication [Unknown]
  - Off label use [Recovered/Resolved]

NARRATIVE: CASE EVENT DATE: 20200424
